FAERS Safety Report 5878143-5 (Version None)
Quarter: 2008Q3

REPORT INFORMATION
  Report Type: 
  Country: None (occurrence: None)
  Receive Date: 20080910
  Receipt Date: 20080910
  Transmission Date: 20090109
  Serious: Yes (Other)
  Sender: FDA-Public Use
  Company Number: None

PATIENT
  Sex: Female
  Weight: 66.2252 kg

DRUGS (2)
  1. TRAMADOL HCL [Suspect]
     Indication: DISCOMFORT
     Dosage: 50 MG 1/6 HRS
     Dates: start: 20080622, end: 20080623
  2. TRAMADOL HCL [Suspect]
     Indication: PAIN
     Dosage: 50 MG 1/6 HRS
     Dates: start: 20080622, end: 20080623

REACTIONS (6)
  - FEELING HOT [None]
  - GENERALISED OEDEMA [None]
  - HYPERHIDROSIS [None]
  - ILL-DEFINED DISORDER [None]
  - MACULAR DEGENERATION [None]
  - VOMITING [None]
